FAERS Safety Report 22011700 (Version 1)
Quarter: 2023Q1

REPORT INFORMATION
  Report Type: Spontaneous
  Country: CN (occurrence: CN)
  Receive Date: 20230220
  Receipt Date: 20230220
  Transmission Date: 20230417
  Serious: Yes (Hospitalization, Other)
  Sender: FDA-Public Use
  Company Number: CN-PFIZER INC-PV202300030523

PATIENT
  Age: 7 Year
  Sex: Male
  Weight: 33 kg

DRUGS (3)
  1. EPIRUBICIN [Suspect]
     Active Substance: EPIRUBICIN
     Indication: Neoplasm malignant
     Dosage: 25 MG, 1X/DAY
     Route: 041
     Dates: start: 20221220, end: 20221222
  2. CYCLOPHOSPHAMIDE [Suspect]
     Active Substance: CYCLOPHOSPHAMIDE
     Indication: Neoplasm malignant
     Dosage: 1.2 G, 1X/DAY
     Route: 041
     Dates: start: 20221220, end: 20221220
  3. VINDESINE SULFATE [Suspect]
     Active Substance: VINDESINE SULFATE
     Indication: Neoplasm malignant
     Dosage: 3 MG, 1X/DAY
     Route: 041
     Dates: start: 20221220, end: 20221220

REACTIONS (2)
  - Myelosuppression [Recovering/Resolving]
  - C-reactive protein increased [Unknown]

NARRATIVE: CASE EVENT DATE: 20221229
